FAERS Safety Report 4395737-7 (Version None)
Quarter: 2004Q3

REPORT INFORMATION
  Report Type: 
  Country: None (occurrence: None)
  Receive Date: 20040707
  Receipt Date: 20040623
  Transmission Date: 20050211
  Serious: Yes (Hospitalization)
  Sender: FDA-Public Use
  Company Number: JP-JNJFOC-20040202203

PATIENT
  Age: 34 Year
  Sex: Female

DRUGS (30)
  1. REMICADE [Suspect]
     Indication: RHEUMATOID ARTHRITIS
     Dosage: 138 MG, INTRAVENOUS (SEE IMAGE)
     Route: 042
     Dates: start: 20031205
  2. REMICADE [Suspect]
     Indication: RHEUMATOID ARTHRITIS
     Dosage: 138 MG, INTRAVENOUS (SEE IMAGE)
     Route: 042
     Dates: start: 20031219
  3. REMICADE [Suspect]
     Indication: RHEUMATOID ARTHRITIS
     Dosage: 138 MG, INTRAVENOUS (SEE IMAGE)
     Route: 042
     Dates: start: 20040116
  4. REMICADE [Suspect]
     Indication: RHEUMATOID ARTHRITIS
     Dosage: 138 MG, INTRAVENOUS (SEE IMAGE)
     Route: 042
     Dates: start: 20040312
  5. REMICADE [Suspect]
     Indication: RHEUMATOID ARTHRITIS
     Dosage: 138 MG, INTRAVENOUS (SEE IMAGE)
     Route: 042
     Dates: start: 20040423
  6. METHOTREXATE [Concomitant]
  7. PREDNINE (PREDNISOLONE) [Concomitant]
  8. LIMETHASON (ALL OTHER THERAPEUTIC PRODUCTS) [Concomitant]
  9. DECADRON [Concomitant]
  10. MILTAX (KETOPROFEN) [Concomitant]
  11. FOLIC ACID [Concomitant]
  12. ALFAROL (ALFACALCIDOL) [Concomitant]
  13. ASPIRIN [Concomitant]
  14. FAMOGAST (FAMOTIDINE) [Concomitant]
  15. CYTOTEC [Concomitant]
  16. SELBEX (TEPRENONE) [Concomitant]
  17. JUVELA (TOCOPHEROL) [Concomitant]
  18. THIATON (TIQUIZIUM BROMIDE) [Concomitant]
  19. FERROMIA (FERROUS CITRATE) [Concomitant]
  20. TALIN (TERBUTALINE SULFATE) [Concomitant]
  21. GATIFLO (GATIFLOXACIN) [Concomitant]
  22. PL (OTHER COLD COMBINATION PREPARATIONS) [Concomitant]
  23. SENEGA [Concomitant]
  24. APRICOT KEMEL WATER [Concomitant]
  25. SIMPLE SYRUP (ALL OTHER THERAPEUTIC PRODUCTS) [Concomitant]
  26. CODEINE SYRUP (CODEINE PHOSPHATE) [Concomitant]
  27. ANPLAG (SARPOGRELATE HYDROCHLORIDE) [Concomitant]
  28. NIPOLAZIN (MEQUITAZINE) [Concomitant]
  29. LIPLE (ALPROSTADIL) [Concomitant]
  30. DOMER (PINAZEPAM) [Concomitant]

REACTIONS (7)
  - ANTI-HBC IGG ANTIBODY POSITIVE [None]
  - ANTINUCLEAR ANTIBODY POSITIVE [None]
  - C-REACTIVE PROTEIN INCREASED [None]
  - CARDIOLIPIN ANTIBODY POSITIVE [None]
  - DNA ANTIBODY POSITIVE [None]
  - DRUG EFFECT DECREASED [None]
  - RAYNAUD'S PHENOMENON [None]
